FAERS Safety Report 11588380 (Version 1)
Quarter: 2015Q4

REPORT INFORMATION
  Report Type: Spontaneous
  Country: US (occurrence: None)
  Receive Date: 20151001
  Receipt Date: 20151001
  Transmission Date: 20160304
  Serious: Yes (Disabling)
  Sender: FDA-Public Use
  Company Number: None

PATIENT
  Age: 58 Year
  Sex: Male
  Weight: 86.18 kg

DRUGS (6)
  1. CLONIDINE 0.1 MG UNI [Suspect]
     Active Substance: CLONIDINE
     Indication: BLOOD PRESSURE MEASUREMENT
     Dosage: TAKEN BY MOUTH
     Dates: start: 20150301, end: 20150929
  2. CLONIDINE. [Concomitant]
     Active Substance: CLONIDINE
  3. MULTIVITAMIN [Concomitant]
     Active Substance: VITAMINS
  4. COQ10 [Concomitant]
     Active Substance: UBIDECARENONE
  5. GARLIC PILLS [Concomitant]
  6. D3 [Concomitant]
     Active Substance: 25-HYDROXYCHOLECALCIFEROL, 5-TRANS-

REACTIONS (6)
  - Insomnia [None]
  - Restlessness [None]
  - Activities of daily living impaired [None]
  - Tinnitus [None]
  - Dizziness [None]
  - Vertigo [None]

NARRATIVE: CASE EVENT DATE: 20150701
